FAERS Safety Report 11870893 (Version 2)
Quarter: 2016Q1

REPORT INFORMATION
  Report Type: Report from Study
  Country: IL (occurrence: IL)
  Receive Date: 20151228
  Receipt Date: 20160105
  Transmission Date: 20160526
  Serious: Yes (Hospitalization)
  Sender: FDA-Public Use
  Company Number: PHHY2013IL120440

PATIENT
  Age: 54 Year
  Sex: Female
  Weight: 70 kg

DRUGS (2)
  1. TASIGNA [Suspect]
     Active Substance: NILOTINIB
     Indication: CHRONIC MYELOID LEUKAEMIA
     Dosage: 450 MG, DAILY (150 MG + 300 MG)
     Route: 048
     Dates: start: 201204
  2. TASIGNA [Suspect]
     Active Substance: NILOTINIB
     Dosage: 150 MG, BID
     Route: 048

REACTIONS (14)
  - Back pain [Unknown]
  - Odynophagia [Recovered/Resolved]
  - Pain [Recovered/Resolved]
  - Oropharyngeal pain [Not Recovered/Not Resolved]
  - Joint swelling [Unknown]
  - Haemoptysis [Recovered/Resolved]
  - Pain in extremity [Recovering/Resolving]
  - Productive cough [Recovered/Resolved]
  - Streptococcal infection [Unknown]
  - Arthralgia [Recovering/Resolving]
  - Intervertebral disc protrusion [Recovered/Resolved]
  - Concomitant disease aggravated [Not Recovered/Not Resolved]
  - Muscle spasms [Not Recovered/Not Resolved]
  - Myalgia [Not Recovered/Not Resolved]

NARRATIVE: CASE EVENT DATE: 20130807
